FAERS Safety Report 21098050 (Version 1)
Quarter: 2022Q3

REPORT INFORMATION
  Report Type: Spontaneous
  Country: US (occurrence: US)
  Receive Date: 20220719
  Receipt Date: 20220719
  Transmission Date: 20221027
  Serious: Yes (Other)
  Sender: FDA-Public Use
  Company Number: US-LUPIN PHARMACEUTICALS INC.-2022-09530

PATIENT
  Age: 71 Year
  Sex: Male

DRUGS (1)
  1. HYDROCODONE BITARTRATE AND ACETAMINOPHEN [Suspect]
     Active Substance: ACETAMINOPHEN\HYDROCODONE BITARTRATE
     Indication: Product used for unknown indication
     Dosage: UNK
     Route: 065

REACTIONS (8)
  - Immobile [Unknown]
  - Headache [Unknown]
  - Eye pain [Unknown]
  - Impaired driving ability [Unknown]
  - Sinus disorder [Unknown]
  - Fatigue [Unknown]
  - Product residue present [Unknown]
  - Product physical issue [Unknown]
